FAERS Safety Report 4828423-7 (Version None)
Quarter: 2005Q4

REPORT INFORMATION
  Report Type: 
  Country: None (occurrence: None)
  Receive Date: 20051115
  Receipt Date: 20051104
  Transmission Date: 20060501
  Serious: Yes (Life-Threatening, Hospitalization)
  Sender: FDA-Public Use
  Company Number: FR-MERCK-0511FRA00011

PATIENT
  Age: 55 Year
  Sex: Male

DRUGS (2)
  1. AGRASTAT [Suspect]
     Indication: ACUTE CORONARY SYNDROME
     Route: 042
     Dates: start: 20050915, end: 20050916
  2. AGRASTAT [Suspect]
     Route: 042
     Dates: start: 20050915, end: 20050915

REACTIONS (2)
  - CEREBRAL HAEMORRHAGE [None]
  - INTRACRANIAL HAEMATOMA [None]
